FAERS Safety Report 9381747 (Version 1)
Quarter: 2013Q3

REPORT INFORMATION
  Report Type: Not Available
  Country: IT (occurrence: IT)
  Receive Date: 20130703
  Receipt Date: 20130703
  Transmission Date: 20140515
  Serious: Yes (Hospitalization)
  Sender: FDA-Public Use
  Company Number: IT-ASTELLAS-2013EU005564

PATIENT
  Age: 68 Year
  Sex: Male

DRUGS (7)
  1. PROGRAF [Suspect]
     Indication: LIVER TRANSPLANT
     Dosage: 2 MG/DAY, UNKNOWN/D
     Route: 048
     Dates: start: 20110410, end: 20120624
  2. LIMPIDEX [Concomitant]
     Indication: OESOPHAGITIS
     Dosage: 30 MG/DAY, UNKNOWN/D
     Route: 048
     Dates: start: 20130201, end: 20130624
  3. DEURSIL [Concomitant]
     Indication: BILIARY TRACT OPERATION
     Dosage: 900 MG/DAY, UNKNOWN/D
     Route: 048
     Dates: start: 20130201, end: 20130624
  4. NOVONORM [Concomitant]
     Indication: DIABETES MELLITUS
     Dosage: 3 MG/DAY, UNKNOWN/D
     Route: 048
     Dates: start: 20130201, end: 20130624
  5. ASCRIPTIN [Concomitant]
     Indication: THROMBOSIS PROPHYLAXIS
     Dosage: 300 MG/DAY, UNKNOWN/D
     Route: 048
     Dates: start: 20130201, end: 20130624
  6. LAEVOLAC EPS [Concomitant]
     Indication: CONSTIPATION
     Dosage: 20 ML, UNKNOWN/D
     Route: 048
     Dates: start: 20130201, end: 20130624
  7. DIFLUCAN [Concomitant]
     Indication: ANTIFUNGAL TREATMENT
     Dosage: 100 MG/DAY, UNKNOWN/D
     Route: 048
     Dates: start: 20130201, end: 20130624

REACTIONS (3)
  - Cerebral ischaemia [Recovered/Resolved with Sequelae]
  - Renal failure [Recovered/Resolved with Sequelae]
  - Pyrexia [Recovered/Resolved with Sequelae]
